FAERS Safety Report 18284604 (Version 8)
Quarter: 2024Q4

REPORT INFORMATION
  Report Type: Report from Study
  Country: US (occurrence: US)
  Receive Date: 20200918
  Receipt Date: 20241106
  Transmission Date: 20250114
  Serious: Yes (Hospitalization, Other)
  Sender: TAKEDA
  Company Number: US-SHIRE-US202030185

PATIENT
  Age: 29 Year
  Sex: Female

DRUGS (3)
  1. VON WILLEBRAND FACTOR (RECOMBINANT) [Suspect]
     Active Substance: VON WILLEBRAND FACTOR (RECOMBINANT)
     Indication: Product used for unknown indication
     Dosage: 3000 INTERNATIONAL UNIT, 2/WEEK
     Route: 042
  2. VON WILLEBRAND FACTOR (RECOMBINANT) [Suspect]
     Active Substance: VON WILLEBRAND FACTOR (RECOMBINANT)
     Dosage: 550 INTERNATIONAL UNIT
     Route: 050
  3. VON WILLEBRAND FACTOR (RECOMBINANT) [Suspect]
     Active Substance: VON WILLEBRAND FACTOR (RECOMBINANT)
     Dosage: 2672 INTERNATIONAL UNIT, Q2WEEKS
     Route: 050

REACTIONS (7)
  - COVID-19 [Unknown]
  - Epistaxis [Unknown]
  - Mouth haemorrhage [Unknown]
  - Postpartum haemorrhage [Unknown]
  - Heavy menstrual bleeding [Unknown]
  - Gingival bleeding [Unknown]
  - Drug hypersensitivity [Unknown]

NARRATIVE: CASE EVENT DATE: 20200908
